FAERS Safety Report 11346474 (Version 1)
Quarter: 2015Q3

REPORT INFORMATION
  Report Type: Spontaneous
  Country: US (occurrence: US)
  Receive Date: 20150803
  Receipt Date: 20150803
  Transmission Date: 20151125
  Serious: No
  Sender: FDA-Public Use
  Company Number: US-ELI_LILLY_AND_COMPANY-US201009003741

PATIENT
  Age: 34 Year
  Sex: Male

DRUGS (1)
  1. ZYPREXA [Suspect]
     Active Substance: OLANZAPINE
     Dosage: 10 MG, DAILY (1/D)
     Route: 065
     Dates: start: 201008

REACTIONS (3)
  - Agitation [Unknown]
  - Akathisia [Unknown]
  - Drooling [Unknown]

NARRATIVE: CASE EVENT DATE: 20100831
